FAERS Safety Report 8571102-3 (Version None)
Quarter: 2012Q3

REPORT INFORMATION
  Report Type: 
  Country: None (occurrence: None)
  Receive Date: 20120806
  Receipt Date: 20120801
  Transmission Date: 20120928
  Serious: No
  Sender: FDA-Public Use
  Company Number: US-PFIZER INC-2012119935

PATIENT
  Age: 55 Year
  Sex: Female
  Weight: 81.6 kg

DRUGS (4)
  1. LEVOXYL [Suspect]
     Dosage: 0.088 MG, UNK
     Dates: end: 20120501
  2. LEVOXYL [Suspect]
     Dosage: UNK
  3. LEVOXYL [Suspect]
     Indication: HYPOTHYROIDISM
     Dosage: 100 UG, UNK
  4. LEVOXYL [Suspect]
     Dosage: 0.088 MG, ONCE
     Dates: start: 20120516

REACTIONS (4)
  - AGITATION [None]
  - PALPITATIONS [None]
  - DYSPHAGIA [None]
  - ANXIETY [None]
